FAERS Safety Report 9344791 (Version 1)
Quarter: 2013Q2

REPORT INFORMATION
  Report Type: Spontaneous
  Country: DE (occurrence: DE)
  Receive Date: 20130612
  Receipt Date: 20130612
  Transmission Date: 20140414
  Serious: Yes (Death)
  Sender: FDA-Public Use
  Company Number: DE-TEVA-409780GER

PATIENT
  Age: 77 Year
  Sex: Female
  Weight: 74 kg

DRUGS (5)
  1. LEVOFLOXACIN [Suspect]
     Indication: LEUKOCYTOSIS
     Dosage: 500 MILLIGRAM DAILY; 1X500
     Route: 048
     Dates: start: 20130412
  2. CARBIMAZOL [Concomitant]
     Indication: HYPERTHYROIDISM
     Dosage: 5 MILLIGRAM DAILY;
     Route: 048
  3. ISOPTIN [Concomitant]
     Indication: TACHYCARDIA
     Dosage: 180 MILLIGRAM DAILY; 120-0-60
     Route: 048
  4. TOREM [Concomitant]
     Indication: OEDEMA
     Dosage: 10 MILLIGRAM DAILY; 10-0-0
     Route: 048
     Dates: start: 20130405
  5. OMEP [Concomitant]
     Indication: OESOPHAGITIS
     Dosage: 20 MILLIGRAM DAILY; 0-0-20
     Route: 048

REACTIONS (1)
  - Death [Fatal]
